FAERS Safety Report 19574567 (Version 2)
Quarter: 2021Q3

REPORT INFORMATION
  Report Type: Spontaneous
  Country: FR (occurrence: FR)
  Receive Date: 20210719
  Receipt Date: 20210924
  Transmission Date: 20211014
  Serious: Yes (Other)
  Sender: FDA-Public Use
  Company Number: FR-NOVOPROD-823411

PATIENT
  Age: 73 Year
  Sex: Female
  Weight: 77 kg

DRUGS (7)
  1. FIASP [Suspect]
     Active Substance: INSULIN ASPART
     Dosage: UNK (IN THE MORNING)
     Route: 058
     Dates: start: 20210615
  2. FIASP [Suspect]
     Active Substance: INSULIN ASPART
     Dosage: UNK (CATRIDGE CHANGED FOR MIDDAY INJECTION)
     Route: 058
     Dates: start: 20210615
  3. NOVORAPID [Suspect]
     Active Substance: INSULIN ASPART
     Indication: TYPE 1 DIABETES MELLITUS
     Dosage: UNK
     Route: 065
  4. FIASP [Suspect]
     Active Substance: INSULIN ASPART
     Dosage: UNK
     Route: 058
     Dates: start: 20210615
  5. FIASP [Suspect]
     Active Substance: INSULIN ASPART
     Dosage: UNK (INJECTED AGAIN)
     Route: 058
     Dates: start: 20210614
  6. FIASP [Suspect]
     Active Substance: INSULIN ASPART
     Dosage: UNK (CATRIDGE CHANGED)
     Route: 058
     Dates: start: 20210614
  7. FIASP [Suspect]
     Active Substance: INSULIN ASPART
     Indication: TYPE 1 DIABETES MELLITUS
     Dosage: 17 IU, QD
     Route: 058

REACTIONS (4)
  - Blood ketone body [Recovered/Resolved]
  - Hyperglycaemia [Recovered/Resolved]
  - Product quality issue [Recovered/Resolved]
  - Drug ineffective [Recovered/Resolved]

NARRATIVE: CASE EVENT DATE: 20210612
